FAERS Safety Report 15944696 (Version 5)
Quarter: 2024Q1

REPORT INFORMATION
  Report Type: Report from Study
  Country: US (occurrence: US)
  Receive Date: 20190211
  Receipt Date: 20240317
  Transmission Date: 20240409
  Serious: No
  Sender: FDA-Public Use
  Company Number: US-ACADIA PHARMACEUTICALS INC.-ACA-2018-011090

PATIENT
  Sex: Male

DRUGS (14)
  1. NUPLAZID [Suspect]
     Active Substance: PIMAVANSERIN TARTRATE
     Indication: Parkinson^s disease
     Dosage: 34 MILLIGRAM, QD
     Route: 048
     Dates: start: 20181205
  2. NUPLAZID [Suspect]
     Active Substance: PIMAVANSERIN TARTRATE
     Dosage: 34 MILLIGRAM, QD
     Route: 048
     Dates: start: 202205
  3. NUPLAZID [Suspect]
     Active Substance: PIMAVANSERIN TARTRATE
     Dosage: 34 MILLIGRAM, QD
     Route: 048
  4. NUPLAZID [Suspect]
     Active Substance: PIMAVANSERIN TARTRATE
     Indication: Parkinson^s disease
     Dosage: 34 MG, QD
     Route: 048
     Dates: start: 20180501
  5. ATORVASTATIN [Concomitant]
     Active Substance: ATORVASTATIN
     Dosage: 20 MILLIGRAM
  6. FLUTICASONE [Concomitant]
     Active Substance: FLUTICASONE
  7. LOSARTAN POTASSIUM [Concomitant]
     Active Substance: LOSARTAN POTASSIUM
  8. RYTARY [Concomitant]
     Active Substance: CARBIDOPA\LEVODOPA
     Dosage: 195 MILLIGRAM
  9. TADALAFIL [Concomitant]
     Active Substance: TADALAFIL
     Dosage: 5 MILLIGRAM
  10. MYRBETRIQ [Concomitant]
     Active Substance: MIRABEGRON
     Dosage: 50 MILLIGRAM
  11. PRAZOSIN HYDROCHLORIDE [Concomitant]
     Active Substance: PRAZOSIN HYDROCHLORIDE
     Dosage: 1 MILLIGRAM
  12. QUETIAPINE [Concomitant]
     Active Substance: QUETIAPINE
     Dosage: 25 MILLIGRAM
  13. RIVASTIGMINE [Concomitant]
     Active Substance: RIVASTIGMINE
     Dosage: 6 MILLIGRAM
  14. TAMSULOSIN [Concomitant]
     Active Substance: TAMSULOSIN
     Dosage: 0.4 MG

REACTIONS (8)
  - Product dose omission issue [Unknown]
  - Product dose omission issue [Unknown]
  - Nonspecific reaction [Unknown]
  - Nonspecific reaction [Unknown]
  - Product dose omission issue [Unknown]
  - Product dose omission issue [Recovered/Resolved]
  - Communication disorder [Not Recovered/Not Resolved]
  - Product dose omission issue [Unknown]

NARRATIVE: CASE EVENT DATE: 20180101
